FAERS Safety Report 5214022-4 (Version None)
Quarter: 2007Q1

REPORT INFORMATION
  Report Type: 
  Country: None (occurrence: None)
  Receive Date: 20070122
  Receipt Date: 20070117
  Transmission Date: 20070707
  Serious: Yes (Hospitalization)
  Sender: FDA-Public Use
  Company Number: US-ELI_LILLY_AND_COMPANY-US200609003450

PATIENT
  Age: 49 Year
  Sex: Female
  Weight: 104.31 kg

DRUGS (2)
  1. ZYPREXA [Suspect]
     Dosage: 40 MG, DAILY (1/D)
     Route: 048
     Dates: start: 20040101, end: 20050101
  2. HYDROCHLOROTHIAZIDE [Concomitant]
     Route: 048
     Dates: start: 20050101

REACTIONS (6)
  - CARDIAC PACEMAKER INSERTION [None]
  - HYPERPHAGIA [None]
  - POLYDIPSIA [None]
  - PRESCRIBED OVERDOSE [None]
  - STENT PLACEMENT [None]
  - VISION BLURRED [None]
